FAERS Safety Report 10249588 (Version 1)
Quarter: 2014Q2

REPORT INFORMATION
  Report Type: Spontaneous
  Country: US (occurrence: US)
  Receive Date: 20140620
  Receipt Date: 20140620
  Transmission Date: 20141212
  Serious: No
  Sender: FDA-Public Use
  Company Number: US-PFIZER INC-2014168049

PATIENT
  Age: 84 Year
  Sex: Female
  Weight: 108.84 kg

DRUGS (11)
  1. CELEBREX [Suspect]
     Indication: ARTHRALGIA
     Dosage: 200 MG, 1X/DAY
     Route: 048
     Dates: start: 20140606
  2. LEVOTHYROXINE [Concomitant]
     Dosage: 0.137 MG, 1X/DAY,IN THE MORNING
  3. BYETTA [Concomitant]
     Dosage: 10 MG, 1X/DAY
  4. VALSARTAN [Concomitant]
     Dosage: 160 MG, 1X/DAY
  5. SPIRONOLACTONE [Concomitant]
     Dosage: 50 MG, UNK
  6. METOPROLOL [Concomitant]
     Dosage: 50 MG, UNK
  7. FAMOTIDINE [Concomitant]
     Dosage: 20 MG, UNK
  8. LYSINE [Concomitant]
     Dosage: UNK
  9. VITAMIN D3 [Concomitant]
     Dosage: UNK
  10. CALCIUM [Concomitant]
     Dosage: UNK
  11. XARELTO [Concomitant]
     Indication: ANTICOAGULANT THERAPY
     Dosage: 20 MG, 1X/DAY

REACTIONS (1)
  - Visual impairment [Not Recovered/Not Resolved]
